FAERS Safety Report 19591750 (Version 1)
Quarter: 2021Q3

REPORT INFORMATION
  Report Type: Spontaneous
  Country: JP (occurrence: JP)
  Receive Date: 20210721
  Receipt Date: 20210721
  Transmission Date: 20211014
  Serious: Yes (Other)
  Sender: FDA-Public Use
  Company Number: JP-009507513-2107JPN006149

PATIENT
  Sex: Female

DRUGS (1)
  1. EMEND [Suspect]
     Active Substance: APREPITANT
     Indication: PROPHYLAXIS OF NAUSEA AND VOMITING
     Dosage: UNK DF
     Route: 048

REACTIONS (5)
  - Visual impairment [Unknown]
  - Flushing [Unknown]
  - Muscular weakness [Unknown]
  - Depressed level of consciousness [Unknown]
  - Somnolence [Unknown]
